FAERS Safety Report 8687734 (Version 3)
Quarter: 2014Q1

REPORT INFORMATION
  Report Type: Report from Study
  Country: FR (occurrence: FR)
  Receive Date: 20120727
  Receipt Date: 20140307
  Transmission Date: 20141002
  Serious: Yes (Hospitalization)
  Sender: FDA-Public Use
  Company Number: FR-EISAI INC-E7389-02742-CLI-FR

PATIENT
  Age: 73 Year
  Sex: Female
  Weight: 45 kg

DRUGS (9)
  1. ERIBULIN [Suspect]
     Indication: BREAST CANCER
     Route: 041
     Dates: start: 20111214, end: 20111221
  2. KABIVEN [Concomitant]
     Indication: SUPPLEMENTATION THERAPY
     Dosage: 800KCAL
     Route: 042
  3. INEXIUM [Concomitant]
     Indication: PROPHYLAXIS
     Route: 048
  4. LEVOTHYROX [Concomitant]
     Indication: HYPOTHYROIDISM
     Route: 048
  5. DECAN [Concomitant]
     Indication: SUPPLEMENTATION THERAPY
     Route: 042
  6. CERNEVIT [Concomitant]
     Indication: SUPPLEMENTATION THERAPY
     Route: 042
  7. INNOHEP [Concomitant]
     Indication: PROPHYLAXIS
     Route: 058
  8. PLITICAN [Concomitant]
     Indication: NAUSEA
     Route: 042
  9. PLITICAN [Concomitant]
     Indication: VOMITING

REACTIONS (1)
  - Lung disorder [Recovered/Resolved]
